FAERS Safety Report 9041503 (Version 1)
Quarter: 2013Q1

REPORT INFORMATION
  Report Type: Report from Study
  Country: US (occurrence: US)
  Receive Date: 20130129
  Receipt Date: 20130129
  Transmission Date: 20140127
  Serious: No
  Sender: FDA-Public Use
  Company Number: US-ABBOTT-12P-163-0889276-00

PATIENT
  Age: 66 Year
  Sex: Female

DRUGS (10)
  1. HUMIRA 40 MG/0.8 ML PEN [Suspect]
     Indication: RHEUMATOID ARTHRITIS
     Dates: start: 20111108
  2. METHOTREXATE [Concomitant]
     Indication: PRODUCT USED FOR UNKNOWN INDICATION
     Dosage: WEEKLY
     Route: 048
  3. POTASSIUM [Concomitant]
     Indication: PRODUCT USED FOR UNKNOWN INDICATION
  4. IRON [Concomitant]
     Indication: PRODUCT USED FOR UNKNOWN INDICATION
  5. WELLBUTRIN XL [Concomitant]
     Indication: DEPRESSION
  6. CITALOPRAM [Concomitant]
     Indication: DEPRESSION
  7. DIURETIC [Concomitant]
     Indication: HYPERTENSION
  8. ULTRAM ER [Concomitant]
     Indication: ARTHRALGIA
     Dosage: AT NOC
  9. TRIAMTERENE [Concomitant]
     Indication: HYPERTENSION
  10. BABY ASPIRIN [Concomitant]
     Indication: PRODUCT USED FOR UNKNOWN INDICATION
     Dosage: DAILY

REACTIONS (15)
  - Nasopharyngitis [Not Recovered/Not Resolved]
  - Laryngitis [Recovering/Resolving]
  - Respiratory tract congestion [Recovering/Resolving]
  - Rhinorrhoea [Recovering/Resolving]
  - Cough [Recovering/Resolving]
  - Musculoskeletal discomfort [Recovering/Resolving]
  - Injection site pain [Not Recovered/Not Resolved]
  - Injection site pain [Not Recovered/Not Resolved]
  - Screaming [Not Recovered/Not Resolved]
  - Injection site pain [Not Recovered/Not Resolved]
  - Osteoporosis [Not Recovered/Not Resolved]
  - Weight increased [Unknown]
  - Nausea [Unknown]
  - Nasopharyngitis [Unknown]
  - Faeces discoloured [Unknown]
